FAERS Safety Report 4546318-3 (Version None)
Quarter: 2005Q1

REPORT INFORMATION
  Report Type: 
  Country: None (occurrence: None)
  Receive Date: 20050103
  Receipt Date: 20041213
  Transmission Date: 20050727
  Serious: Yes (Other)
  Sender: FDA-Public Use
  Company Number: US_0412109093

PATIENT
  Age: 57 Year
  Sex: Female

DRUGS (4)
  1. VINCRISTINE SULFATE [Suspect]
     Indication: MULTIPLE MYELOMA
     Dates: start: 19981104
  2. CYCLOPHOSPHAMIDE [Concomitant]
  3. DOXORUBICIN HCL [Concomitant]
  4. DEXAMETHASONE [Concomitant]

REACTIONS (7)
  - CULTURE URINE POSITIVE [None]
  - DIARRHOEA [None]
  - DISEASE RECURRENCE [None]
  - GASTROENTERITIS SALMONELLA [None]
  - LYMPHOPENIA [None]
  - SALMONELLOSIS [None]
  - VOMITING [None]
